FAERS Safety Report 6280153-3 (Version None)
Quarter: 2009Q3

REPORT INFORMATION
  Report Type: 
  Country: None (occurrence: None)
  Receive Date: 20090723
  Receipt Date: 20090715
  Transmission Date: 20100115
  Serious: Yes (Hospitalization)
  Sender: FDA-Public Use
  Company Number: PHHO2009US08854

PATIENT
  Sex: Male

DRUGS (4)
  1. ZOLEDRONIC ACID [Suspect]
     Indication: METASTATIC RENAL CELL CARCINOMA
     Dosage: UNK
     Route: 042
     Dates: start: 20060313, end: 20060920
  2. SUNITINIB MALATE [Concomitant]
     Indication: METASTATIC RENAL CELL CARCINOMA
     Dosage: TTD 50MG
     Dates: start: 20060130, end: 20060914
  3. SUNITINIB MALATE [Concomitant]
     Dosage: TTD 37.5 MG
     Dates: start: 20060915, end: 20061114
  4. SUNITINIB MALATE [Concomitant]
     Dosage: TDD 50 MG
     Dates: start: 20061213, end: 20070225

REACTIONS (2)
  - JAW OPERATION [None]
  - OSTEONECROSIS [None]
